FAERS Safety Report 26207592 (Version 2)
Quarter: 2025Q4

REPORT INFORMATION
  Report Type: Report from Study
  Country: US (occurrence: US)
  Receive Date: 20251229
  Receipt Date: 20251230
  Transmission Date: 20260118
  Serious: Yes (Other)
  Sender: MYLAN
  Company Number: US-MYLANLABS-2025M1110460

PATIENT
  Age: 71 Year
  Sex: Female
  Weight: 58.96 kg

DRUGS (4)
  1. YUPELRI [Suspect]
     Active Substance: REVEFENACIN
     Indication: Chronic obstructive pulmonary disease
     Dosage: 175 MICROGRAM PER 3 MILLILITRE, QD (ONCE DAILY VIA NEBULIZER)
     Dates: start: 20251216, end: 20251220
  2. YUPELRI [Suspect]
     Active Substance: REVEFENACIN
     Dosage: 175 MICROGRAM PER 3 MILLILITRE, QD (ONCE DAILY VIA NEBULIZER)
     Route: 055
     Dates: start: 20251216, end: 20251220
  3. YUPELRI [Suspect]
     Active Substance: REVEFENACIN
     Dosage: 175 MICROGRAM PER 3 MILLILITRE, QD (ONCE DAILY VIA NEBULIZER)
     Route: 055
     Dates: start: 20251216, end: 20251220
  4. YUPELRI [Suspect]
     Active Substance: REVEFENACIN
     Dosage: 175 MICROGRAM PER 3 MILLILITRE, QD (ONCE DAILY VIA NEBULIZER)
     Dates: start: 20251216, end: 20251220

REACTIONS (6)
  - Chest discomfort [Recovered/Resolved]
  - Throat tightness [Recovered/Resolved]
  - Swelling face [Recovered/Resolved]
  - Pruritus [Recovered/Resolved]
  - Erythema [Recovered/Resolved]
  - Visual impairment [Recovered/Resolved]

NARRATIVE: CASE EVENT DATE: 20251218
